FAERS Safety Report 7303885-4 (Version None)
Quarter: 2011Q1

REPORT INFORMATION
  Report Type: 
  Country: None (occurrence: None)
  Receive Date: 20110221
  Receipt Date: 20110216
  Transmission Date: 20110831
  Serious: Yes (Hospitalization)
  Sender: FDA-Public Use
  Company Number: B0700217A

PATIENT
  Sex: Female

DRUGS (3)
  1. ZELITREX [Suspect]
     Dosage: 20MG PER DAY
     Route: 048
     Dates: start: 20110120, end: 20110127
  2. CEFTRIAXONE [Suspect]
     Route: 042
     Dates: start: 20110120, end: 20110125
  3. BACTRIM [Suspect]
     Dosage: 1TAB PER DAY
     Route: 048
     Dates: start: 20110125, end: 20110127

REACTIONS (1)
  - BLOOD CREATININE INCREASED [None]
